FAERS Safety Report 4376322-X (Version None)
Quarter: 2004Q2

REPORT INFORMATION
  Report Type: 
  Country: None (occurrence: None)
  Receive Date: 20040603
  Receipt Date: 20031031
  Transmission Date: 20050107
  Serious: Yes (Hospitalization)
  Sender: FDA-Public Use
  Company Number: 200319084US

PATIENT
  Age: 42 Year
  Sex: Female
  Weight: 90 kg

DRUGS (2)
  1. LOVENOX [Suspect]
     Indication: PULMONARY EMBOLISM
     Dosage: 90 MG BID SC
     Route: 058
     Dates: start: 20031017, end: 20031019
  2. COUMADIN [Concomitant]

REACTIONS (3)
  - HAEMORRHAGE [None]
  - HYPOTENSION [None]
  - URETHRAL HAEMORRHAGE [None]
